FAERS Safety Report 22900650 (Version 7)
Quarter: 2024Q3

REPORT INFORMATION
  Report Type: Spontaneous
  Country: US (occurrence: US)
  Receive Date: 20230904
  Receipt Date: 20240814
  Transmission Date: 20241017
  Serious: Yes (Death, Hospitalization, Other)
  Sender: NOVARTIS
  Company Number: US-SANDOZ-SDZ2023US022151

PATIENT
  Age: 71 Year
  Sex: Male
  Weight: 55.8 kg

DRUGS (29)
  1. CLOFAZIMINE [Suspect]
     Active Substance: CLOFAZIMINE
     Indication: Mycobacterium abscessus infection
     Dosage: 100 MG, QD
     Route: 048
     Dates: start: 20230713
  2. MICAFUNGIN [Suspect]
     Active Substance: MICAFUNGIN SODIUM
     Indication: Osteomyelitis
     Dosage: UNK UNK (12/8-PRESENT)
     Route: 065
  3. SULFAMETHOXAZOLE\TRIMETHOPRIM [Suspect]
     Active Substance: SULFAMETHOXAZOLE\TRIMETHOPRIM
     Indication: Product used for unknown indication
     Dosage: UNK (12/16-1/15)
     Route: 065
  4. AMIKACIN [Suspect]
     Active Substance: AMIKACIN
     Indication: Product used for unknown indication
     Dosage: UNK (5/26-7/12)
     Route: 065
  5. AMIKACIN [Suspect]
     Active Substance: AMIKACIN
     Dosage: UNK1.25 G (MONDAY/ WEDNESDAY/FRIDAY)
     Route: 065
  6. AMIKACIN [Suspect]
     Active Substance: AMIKACIN
     Dosage: UNKUNK, (NEBULIZERS)
     Route: 065
  7. ALBUTEROL [Concomitant]
     Active Substance: ALBUTEROL
     Indication: Product used for unknown indication
     Dosage: 90 UG, Q6H (Q6H (2 PUFF) (ACTUATION INHALER))
     Route: 055
  8. XANAX [Concomitant]
     Active Substance: ALPRAZOLAM
     Indication: Anxiety
     Dosage: 1 DOSAGE FORM, BID (AS NEEDED)
     Route: 048
  9. ANORO ELLIPTA [Concomitant]
     Active Substance: UMECLIDINIUM BROMIDE\VILANTEROL TRIFENATATE
     Indication: Product used for unknown indication
     Dosage: UNK 1 PUFF DAILY (62.5 TO 25 MCG/ACTUATION)
     Route: 055
  10. ZITHROMAX [Concomitant]
     Active Substance: AZITHROMYCIN DIHYDRATE
     Indication: Product used for unknown indication
     Dosage: 1 DOSAGE FORM, QD
     Route: 048
     Dates: start: 202211
  11. PULMICORT TURBUHALER [Concomitant]
     Active Substance: BUDESONIDE
     Indication: Product used for unknown indication
     Dosage: 4.5 MG, QD (NEBULIZER SOLUTION)
     Route: 065
  12. INVOKANA [Concomitant]
     Active Substance: CANAGLIFLOZIN
     Indication: Product used for unknown indication
     Dosage: 1 DOSAGE FORM
     Route: 065
  13. CEFTAROLINE [Concomitant]
     Active Substance: CEFTAROLINE
     Indication: Mycobacterium abscessus infection
     Dosage: 600 MG, Q12H (IN DEXTROSE 50 ML IVPB), INFUSE 600MG INTO VENOUS CATHETER Q12 H)
     Route: 042
  14. CEFTAROLINE [Concomitant]
     Active Substance: CEFTAROLINE
     Dosage: UNKUNK (1/15-PRESENT)
     Route: 065
  15. CEFTAROLINE [Concomitant]
     Active Substance: CEFTAROLINE
     Dosage: UNK ( (7/7-11/22
     Route: 065
  16. CEFTAROLINE [Concomitant]
     Active Substance: CEFTAROLINE
     Dosage: 600 MG, BID
     Route: 065
  17. INSULIN LISPRO [Concomitant]
     Active Substance: INSULIN LISPRO
     Indication: Product used for unknown indication
     Dosage: UNK (100 UNIT PER ML)
     Route: 065
  18. GLUCOPHAGE [Concomitant]
     Active Substance: METFORMIN HYDROCHLORIDE
     Indication: Product used for unknown indication
     Dosage: 1 DOSAGE FORM, QD
     Route: 048
  19. PRILOSEC [Concomitant]
     Active Substance: OMEPRAZOLE MAGNESIUM
     Indication: Product used for unknown indication
     Dosage: 1 DOSAGE FORM
     Route: 048
  20. FLOMAX [Concomitant]
     Active Substance: TAMSULOSIN HYDROCHLORIDE
     Indication: Product used for unknown indication
     Dosage: 1 DOSAGE FORM, QD
     Route: 065
  21. TYGACIL [Concomitant]
     Active Substance: TIGECYCLINE
     Indication: Product used for unknown indication
     Dosage: 50 MG, BID  (INFUSE 50 MG INTO A VENOUS CATHETER) INJECTION NOS
     Route: 065
  22. DEXTROSE [Concomitant]
     Active Substance: DEXTROSE\DEXTROSE MONOHYDRATE
     Indication: Blood glucose decreased
     Dosage: 16 G, PRN (CHEW 4 TABLEST)
     Route: 065
  23. LANTUS [Concomitant]
     Active Substance: INSULIN GLARGINE
     Indication: Product used for unknown indication
     Dosage: UNK (12 UNITS UNDER SKIN NIGHTLY, 100 UNIT/ML, INJECTION NOS)
     Route: 065
  24. LINEZOLID [Concomitant]
     Active Substance: LINEZOLID
     Indication: Mycobacterium abscessus infection
     Dosage: 600 MG, QD
     Route: 065
     Dates: start: 202211
  25. NARCAN [Concomitant]
     Active Substance: NALOXONE HYDROCHLORIDE
     Indication: Product used for unknown indication
     Dosage: 4 MG, PRN (SPRAY (4MG/ACTUATION) EVERY 2-3 MINUTES ALTERING NOSTRILS)
     Route: 045
  26. AZITHROMYCIN [Concomitant]
     Active Substance: AZITHROMYCIN
     Indication: Product used for unknown indication
     Dosage: 500 MG, QD
     Route: 065
  27. IMIPENEM [Concomitant]
     Active Substance: IMIPENEM
     Indication: Mycobacterium abscessus infection
     Dosage: 1 G, BID (1/15-PRESENT)
     Route: 065
  28. TIGECYCLINE [Concomitant]
     Active Substance: TIGECYCLINE
     Indication: Product used for unknown indication
     Dosage: 50 MG, BID
     Route: 065
  29. TIGECYCLINE [Concomitant]
     Active Substance: TIGECYCLINE
     Dosage: 50 MG, QD (DECREASED THE DOSE)
     Route: 065

REACTIONS (21)
  - Hypercapnia [Fatal]
  - Respiratory failure [Recovered/Resolved with Sequelae]
  - Deafness [Not Recovered/Not Resolved]
  - Electrocardiogram QT prolonged [Not Recovered/Not Resolved]
  - Dysphonia [Not Recovered/Not Resolved]
  - Hyponatraemia [Recovered/Resolved]
  - Ichthyosis [Not Recovered/Not Resolved]
  - Soft tissue infection [Not Recovered/Not Resolved]
  - Candida infection [Unknown]
  - Condition aggravated [Unknown]
  - Dyspnoea exertional [Recovered/Resolved]
  - Insomnia [Unknown]
  - Decreased appetite [Not Recovered/Not Resolved]
  - Nausea [Unknown]
  - Weight decreased [Not Recovered/Not Resolved]
  - Xeroderma [Not Recovered/Not Resolved]
  - Hypoglycaemia [Recovering/Resolving]
  - Lung opacity [Unknown]
  - Upper respiratory tract infection [Recovered/Resolved]
  - Hepatic enzyme increased [Not Recovered/Not Resolved]
  - Pruritus [Not Recovered/Not Resolved]

NARRATIVE: CASE EVENT DATE: 20230601
